FAERS Safety Report 5619770-X (Version None)
Quarter: 2008Q1

REPORT INFORMATION
  Report Type: 
  Country: None (occurrence: None)
  Receive Date: 20080208
  Receipt Date: 20080129
  Transmission Date: 20080703
  Serious: Yes (Hospitalization)
  Sender: FDA-Public Use
  Company Number: AU-JNJFOC-20071004619

PATIENT
  Sex: Male

DRUGS (16)
  1. TMC114 [Suspect]
     Route: 048
  2. TMC114 [Suspect]
     Indication: HIV INFECTION
     Route: 048
  3. RITONAVIR [Suspect]
     Indication: HIV INFECTION
     Route: 048
  4. MK-0518 [Suspect]
     Indication: HIV INFECTION
     Route: 065
  5. TMC125 [Concomitant]
     Indication: HIV INFECTION
     Route: 048
  6. TENOFOVIR DISOPROXIL FUMARATE [Concomitant]
     Indication: HIV INFECTION
     Route: 048
  7. LAMIVUDINE [Concomitant]
     Indication: HIV INFECTION
     Route: 048
  8. DEXAMETHASONE TAB [Concomitant]
     Indication: CASTLEMAN'S DISEASE
     Route: 048
  9. DOXORUBICIN [Concomitant]
     Indication: KAPOSI'S SARCOMA
     Route: 042
  10. BACTRIM DS [Concomitant]
     Indication: PROPHYLAXIS
     Route: 048
  11. AZITHROMYCIN [Concomitant]
     Indication: PROPHYLAXIS
     Route: 048
  12. CALTRATE [Concomitant]
     Indication: PROPHYLAXIS
     Route: 048
  13. OSTELIN [Concomitant]
     Indication: OSTEOPOROSIS PROPHYLAXIS
     Route: 048
  14. ALPRAZOLAM [Concomitant]
     Indication: INSOMNIA
     Route: 048
  15. ZOLPIDEM [Concomitant]
     Indication: INSOMNIA
     Route: 048
  16. AMPHOTERICIN B [Concomitant]
     Indication: CANDIDIASIS
     Route: 065

REACTIONS (8)
  - GENERAL PHYSICAL HEALTH DETERIORATION [None]
  - HEPATIC ENZYME INCREASED [None]
  - HEPATIC STEATOSIS [None]
  - HYPOGLYCAEMIA [None]
  - INCORRECT DOSE ADMINISTERED [None]
  - SPINAL FRACTURE [None]
  - SPLENOMEGALY [None]
  - STAPHYLOCOCCAL ABSCESS [None]
